FAERS Safety Report 7084348-0 (Version None)
Quarter: 2010Q4

REPORT INFORMATION
  Report Type: 
  Country: None (occurrence: None)
  Receive Date: 20101104
  Receipt Date: 20101025
  Transmission Date: 20110411
  Serious: Yes (Death, Other)
  Sender: FDA-Public Use
  Company Number: JP-PFIZER INC-2010124400

PATIENT
  Age: 42 Year
  Sex: Male
  Weight: 58 kg

DRUGS (21)
  1. LYRICA [Suspect]
     Indication: PAIN
     Dosage: 75 MG, 2X/DAY
     Route: 048
     Dates: start: 20100816, end: 20100905
  2. LYRICA [Suspect]
     Indication: BACK PAIN
     Dosage: 150 MG, 2X/DAY
     Route: 048
     Dates: start: 20100906, end: 20100913
  3. LYRICA [Suspect]
     Dosage: 187.5 MG, 2X/DAY
     Route: 048
     Dates: start: 20100914, end: 20100923
  4. LYRICA [Suspect]
     Dosage: 225 MG, 2X/DAY
     Route: 048
     Dates: start: 20100924, end: 20100928
  5. DESYREL [Suspect]
     Indication: INSOMNIA
     Dosage: 50 MG, 1X/DAY
     Route: 048
     Dates: start: 20100928, end: 20100928
  6. FENTANYL [Suspect]
     Indication: PAIN
     Dosage: 2.1 MG, UNK
     Route: 062
     Dates: start: 20100522, end: 20100614
  7. FENTANYL [Suspect]
     Dosage: 4.2 MG, UNK
     Dates: start: 20100615, end: 20100620
  8. FENTANYL [Suspect]
     Dosage: 2.1 MG, UNK
     Dates: start: 20100621, end: 20100627
  9. FENTANYL [Suspect]
     Dosage: 4.2 MG, UNK
     Dates: start: 20100628, end: 20100905
  10. FENTANYL [Suspect]
     Dosage: 2.1 MG, UNK
     Dates: start: 20100906, end: 20100913
  11. FENTANYL [Suspect]
     Dosage: 4.2 MG, UNK
     Dates: start: 20100914
  12. AMITRIPTYLINE HCL [Suspect]
     Dosage: 10 MG, 3X/DAY
     Route: 048
     Dates: start: 20090817, end: 20100928
  13. MORPHINE HYDROCHLORIDE [Suspect]
     Indication: PAIN
     Dosage: UNK
     Route: 048
     Dates: start: 20100518, end: 20100928
  14. SOLANAX [Suspect]
     Indication: INSOMNIA
     Dosage: 0.4 MG, 2X/DAY
     Route: 048
     Dates: start: 20091022, end: 20100928
  15. LANDSEN [Suspect]
     Dosage: 0.5 MG, 1X/DAY
     Route: 048
     Dates: start: 20090803, end: 20100928
  16. NEUROTROPIN [Suspect]
     Indication: PAIN
     Dosage: 2 IU, 2X/DAY
     Route: 048
     Dates: end: 20100928
  17. MAGNESIUM OXIDE [Suspect]
     Indication: CONSTIPATION
     Dosage: 660 MG, 3X/DAY
     Route: 048
     Dates: start: 20100614, end: 20100928
  18. PURSENNID [Suspect]
     Indication: CONSTIPATION
     Dosage: 24 MG, 1X/DAY
     Route: 048
     Dates: start: 20100518, end: 20100928
  19. GASCON [Suspect]
     Indication: CONSTIPATION
     Dosage: 30 MG, 3X/DAY
     Route: 048
     Dates: start: 20100628, end: 20100928
  20. VOLTAREN [Suspect]
     Indication: PAIN
     Dosage: 50 MG, UNK
     Route: 054
     Dates: end: 20100928
  21. CYMBALTA [Suspect]
     Indication: PAIN
     Dosage: 20 MG, 1X/DAY
     Route: 048
     Dates: start: 20100928

REACTIONS (4)
  - CARDIAC FAILURE [None]
  - INSOMNIA [None]
  - PAIN [None]
  - SUICIDAL IDEATION [None]
